FAERS Safety Report 9207736 (Version 1)
Quarter: 2013Q2

REPORT INFORMATION
  Report Type: Spontaneous
  Country: US (occurrence: US)
  Receive Date: 20130403
  Receipt Date: 20130403
  Transmission Date: 20140414
  Serious: No
  Sender: FDA-Public Use
  Company Number: US-B.I. PHARMACEUTICALS,INC./RIDGEFIELD-2013-BI-08224BP

PATIENT
  Sex: Female

DRUGS (5)
  1. COMBIVENT [Suspect]
     Indication: CHRONIC OBSTRUCTIVE PULMONARY DISEASE
     Route: 055
     Dates: start: 201212
  2. CELEBREX [Concomitant]
     Indication: INTERVERTEBRAL DISC PROTRUSION
     Dosage: 200 MG
     Route: 048
  3. ESTER C [Concomitant]
     Route: 048
  4. MULTIVITAMIN [Concomitant]
     Route: 048
  5. CALCIUM [Concomitant]
     Route: 048

REACTIONS (2)
  - Headache [Not Recovered/Not Resolved]
  - Intentional drug misuse [Unknown]
